FAERS Safety Report 24868726 (Version 2)
Quarter: 2025Q1

REPORT INFORMATION
  Report Type: Report from Study
  Country: CA (occurrence: CA)
  Receive Date: 20250121
  Receipt Date: 20250123
  Transmission Date: 20250409
  Serious: Yes (Other)
  Sender: DAIICHI
  Company Number: CA-AstraZeneca-CH-00777996A

PATIENT
  Sex: Female
  Weight: 68 kg

DRUGS (2)
  1. ENHERTU [Suspect]
     Active Substance: FAM-TRASTUZUMAB DERUXTECAN-NXKI
     Indication: HER2 positive breast cancer
     Dosage: 299.2 MG, ONCE EVERY 3 WK
     Route: 065
     Dates: start: 20221028
  2. ENHERTU [Suspect]
     Active Substance: FAM-TRASTUZUMAB DERUXTECAN-NXKI
     Dosage: 278 MG, ONCE EVERY 3 WK
     Route: 042
     Dates: start: 20221028

REACTIONS (2)
  - Ovarian cyst [Unknown]
  - Neutropenia [Recovered/Resolved]
